FAERS Safety Report 4539252-6 (Version None)
Quarter: 2004Q4

REPORT INFORMATION
  Report Type: 
  Country: None (occurrence: None)
  Receive Date: 20041228
  Receipt Date: 20041217
  Transmission Date: 20050328
  Serious: Yes (Hospitalization)
  Sender: FDA-Public Use
  Company Number: MX-JNJFOC-20041205402

PATIENT
  Sex: Male
  Weight: 59 kg

DRUGS (5)
  1. REMICADE [Suspect]
     Indication: RHEUMATOID ARTHRITIS
     Route: 042
     Dates: start: 20041006, end: 20041010
  2. METHOTREXATE [Concomitant]
     Indication: RHEUMATOID ARTHRITIS
  3. PREDNISONE [Concomitant]
     Indication: RHEUMATOID ARTHRITIS
  4. CELECOXIB [Concomitant]
     Indication: RHEUMATOID ARTHRITIS
  5. OMEPRAZOLE [Concomitant]
     Indication: GASTRITIS
     Route: 049

REACTIONS (5)
  - ABDOMINAL PAIN [None]
  - LEUKOCYTOSIS [None]
  - NAUSEA [None]
  - PERITONEAL TUBERCULOSIS [None]
  - VOMITING [None]
